FAERS Safety Report 10862884 (Version 1)
Quarter: 2015Q1

REPORT INFORMATION
  Report Type: Spontaneous
  Country: US (occurrence: US)
  Receive Date: 20150223
  Receipt Date: 20150223
  Transmission Date: 20150721
  Serious: Yes (Life-Threatening, Hospitalization, Other)
  Sender: FDA-Public Use
  Company Number: US-BAYER-2015-024488

PATIENT
  Sex: Male
  Weight: 1.34 kg

DRUGS (6)
  1. NIFEDIPINE. [Suspect]
     Active Substance: NIFEDIPINE
     Dosage: UNK UNK, ONCE
     Route: 064
  2. HYDRALAZINE [Suspect]
     Active Substance: HYDRALAZINE HYDROCHLORIDE
     Dosage: UNK UNK, ONCE
     Route: 064
  3. LABETALOL [Suspect]
     Active Substance: LABETALOL\LABETALOL HYDROCHLORIDE
     Dosage: UNK
     Route: 064
  4. HYDRALAZINE [Suspect]
     Active Substance: HYDRALAZINE HYDROCHLORIDE
     Dosage: UNK UNK, ONCE
     Route: 064
  5. LABETALOL [Suspect]
     Active Substance: LABETALOL\LABETALOL HYDROCHLORIDE
     Dosage: UNK
     Route: 064
  6. NIFEDIPINE. [Suspect]
     Active Substance: NIFEDIPINE
     Dosage: UNK UNK, ONCE
     Route: 064

REACTIONS (12)
  - Intraventricular haemorrhage neonatal [None]
  - Foetal exposure during pregnancy [None]
  - Premature baby [None]
  - Apgar score low [None]
  - Bradycardia neonatal [Recovered/Resolved]
  - Neonatal hypotension [Recovered/Resolved]
  - Renal failure [Recovered/Resolved]
  - Bradycardia foetal [None]
  - Foetal acidosis [None]
  - Hypoglycaemia neonatal [None]
  - Hypoxia [Recovered/Resolved]
  - Low birth weight baby [None]
